FAERS Safety Report 9909814 (Version 2)
Quarter: 2014Q1

REPORT INFORMATION
  Report Type: Report from Study
  Country: CA (occurrence: CA)
  Receive Date: 20140219
  Receipt Date: 20140226
  Transmission Date: 20141002
  Serious: Yes (Hospitalization, Other)
  Sender: FDA-Public Use
  Company Number: CA-JNJFOC-20140207980

PATIENT
  Age: 0 Year
  Sex: Female

DRUGS (2)
  1. REMICADE [Suspect]
     Indication: CROHN^S DISEASE
     Dosage: PARENT DOSING
     Route: 063
     Dates: start: 20101012
  2. CEPHALEXIN [Suspect]
     Indication: LOCALISED INFECTION
     Route: 063

REACTIONS (5)
  - Cataract [Unknown]
  - Foetal exposure during pregnancy [Recovered/Resolved]
  - Respiratory syncytial virus infection [Unknown]
  - Exposure during breast feeding [Unknown]
  - Weight abnormal [Unknown]
